FAERS Safety Report 6678769-5 (Version None)
Quarter: 2010Q2

REPORT INFORMATION
  Report Type: 
  Country: None (occurrence: None)
  Receive Date: 20100413
  Receipt Date: 20100407
  Transmission Date: 20101027
  Serious: Yes (Other)
  Sender: FDA-Public Use
  Company Number: US-JNJFOC-20090801676

PATIENT
  Sex: Female
  Weight: 97.98 kg

DRUGS (9)
  1. LEVAQUIN [Suspect]
     Indication: URINARY TRACT INFECTION STAPHYLOCOCCAL
     Route: 042
  2. LEVAQUIN [Suspect]
     Route: 048
  3. NORVASC [Concomitant]
     Indication: HYPERTENSION
     Route: 048
  4. HYDROCHLOROTHIAZIDE [Concomitant]
     Indication: DIURETIC THERAPY
     Route: 048
  5. ALEVE (CAPLET) [Concomitant]
     Route: 065
  6. KETOROLAC TROMETHAMINE [Concomitant]
     Route: 065
  7. ROCEPHIN [Concomitant]
     Route: 042
  8. TOBRADEX [Concomitant]
     Route: 065
  9. IV FLUIDS [Concomitant]
     Route: 042

REACTIONS (5)
  - ARTHRALGIA [None]
  - OSTEOARTHRITIS [None]
  - PERIARTHRITIS [None]
  - SYNOVITIS [None]
  - TENDONITIS [None]
